FAERS Safety Report 4792885-4 (Version None)
Quarter: 2005Q4

REPORT INFORMATION
  Report Type: 
  Country: None (occurrence: None)
  Receive Date: 20051010
  Receipt Date: 20050930
  Transmission Date: 20060501
  Serious: Yes (Other)
  Sender: FDA-Public Use
  Company Number: PHEH2005US10959

PATIENT
  Sex: Male

DRUGS (3)
  1. STEROIDS NOS [Concomitant]
  2. CHEMOTHERAPEUTICS,OTHER [Concomitant]
  3. ZOMETA [Suspect]
     Indication: PROSTATE CANCER
     Dosage: 4 MG, UNK

REACTIONS (1)
  - OSTEONECROSIS [None]
